FAERS Safety Report 8934221 (Version 2)
Quarter: 2013Q1

REPORT INFORMATION
  Report Type: Spontaneous
  Country: US (occurrence: US)
  Receive Date: 20121129
  Receipt Date: 20130110
  Transmission Date: 20140127
  Serious: No
  Sender: FDA-Public Use
  Company Number: US-009507513-1211USA012211

PATIENT
  Sex: Female
  Weight: 90.7 kg

DRUGS (7)
  1. ZEGERID OTC CAPSULES [Suspect]
     Indication: GASTROOESOPHAGEAL REFLUX DISEASE
     Dosage: 20 MG, QD
     Route: 048
     Dates: start: 200910
  2. ZEGERID OTC CAPSULES [Suspect]
     Indication: DYSPEPSIA
  3. ZEGERID OTC CAPSULES [Suspect]
     Indication: MEDICAL OBSERVATION
  4. EFFEXOR [Concomitant]
     Indication: DEPRESSION
     Dosage: UNK, UNKNOWN
  5. OXYBUTYNIN [Concomitant]
     Indication: URINARY TRACT DISORDER
     Dosage: UNK, UNKNOWN
  6. TRAZODONE HYDROCHLORIDE [Concomitant]
     Indication: INSOMNIA
     Dosage: UNK, UNKNOWN
  7. DICLOFENAC [Concomitant]
     Indication: ARTHRITIS
     Dosage: UNK, UNKNOWN

REACTIONS (1)
  - Dysgeusia [Recovered/Resolved]
